FAERS Safety Report 6609878-4 (Version None)
Quarter: 2010Q1

REPORT INFORMATION
  Report Type: 
  Country: None (occurrence: None)
  Receive Date: 20100302
  Receipt Date: 20100224
  Transmission Date: 20100710
  Serious: Yes (Other)
  Sender: FDA-Public Use
  Company Number: PHHY2010FR11106

PATIENT
  Age: 23 Year
  Sex: Male

DRUGS (3)
  1. STALEVO 100 [Suspect]
  2. RISPERDAL [Concomitant]
     Dosage: UNK
     Dates: end: 20090601
  3. VALIUM [Concomitant]

REACTIONS (1)
  - INTENTIONAL DRUG MISUSE [None]
